FAERS Safety Report 5383851-9 (Version None)
Quarter: 2007Q3

REPORT INFORMATION
  Report Type: 
  Country: None (occurrence: None)
  Receive Date: 20070711
  Receipt Date: 20070704
  Transmission Date: 20080115
  Serious: Yes (Death, Hospitalization)
  Sender: FDA-Public Use
  Company Number: GRWYE971605JUL07

PATIENT
  Age: 67 Year
  Sex: Male
  Weight: 90 kg

DRUGS (8)
  1. EFFEXOR XR [Suspect]
     Indication: DEPRESSION
     Dosage: UNKNOWN DAILY DOSE
     Route: 048
     Dates: end: 20070618
  2. SIMVASTATIN [Suspect]
     Indication: DYSLIPIDAEMIA
     Route: 048
     Dates: start: 20070101, end: 20070618
  3. MONOSORDIL [Concomitant]
     Dosage: 60 MG EVERY
     Route: 048
  4. ACCUPRON [Concomitant]
     Dosage: 100 MG EVERY
     Route: 048
  5. LOPRESSOR [Concomitant]
  6. PLAVIX [Concomitant]
     Dosage: 6.25 MG EVERY
     Route: 048
  7. SEROQUEL [Suspect]
  8. CARVEDILOL [Concomitant]
     Dosage: 20 MG EVERY
     Route: 048

REACTIONS (2)
  - RENAL FAILURE ACUTE [None]
  - RHABDOMYOLYSIS [None]
